FAERS Safety Report 23297261 (Version 1)
Quarter: 2023Q4

REPORT INFORMATION
  Report Type: Spontaneous
  Country: US (occurrence: None)
  Receive Date: 20231214
  Receipt Date: 20231214
  Transmission Date: 20240110
  Serious: Yes (Other)
  Sender: FDA-Public Use
  Company Number: None

PATIENT
  Sex: Female

DRUGS (1)
  1. VISTARIL [Suspect]
     Active Substance: HYDROXYZINE PAMOATE

REACTIONS (10)
  - Brain fog [None]
  - Fatigue [None]
  - Presyncope [None]
  - Dizziness [None]
  - Dyspnoea [None]
  - Chest pain [None]
  - Blood pressure decreased [None]
  - Paraesthesia [None]
  - Insomnia [None]
  - Dry mouth [None]
